FAERS Safety Report 11250041 (Version 1)
Quarter: 2015Q3

REPORT INFORMATION
  Report Type: Spontaneous
  Country: US (occurrence: US)
  Receive Date: 20150708
  Receipt Date: 20150708
  Transmission Date: 20151125
  Serious: No
  Sender: FDA-Public Use
  Company Number: US-ELI_LILLY_AND_COMPANY-US200901005330

PATIENT
  Age: 56 Year
  Sex: Female

DRUGS (2)
  1. SYMBYAX [Suspect]
     Active Substance: FLUOXETINE HYDROCHLORIDE\OLANZAPINE
     Indication: HALLUCINATION
     Dosage: 1 D/F, UNK
     Dates: start: 20090128
  2. GEODON [Concomitant]
     Active Substance: ZIPRASIDONE HYDROCHLORIDE\ZIPRASIDONE MESYLATE
     Dates: start: 20090119, end: 20090128

REACTIONS (2)
  - Panic reaction [Unknown]
  - Hallucination [Unknown]

NARRATIVE: CASE EVENT DATE: 20090129
